FAERS Safety Report 16796893 (Version 6)
Quarter: 2022Q3

REPORT INFORMATION
  Report Type: Report from Study
  Country: DE (occurrence: DE)
  Receive Date: 20190911
  Receipt Date: 20220827
  Transmission Date: 20221026
  Serious: Yes (Hospitalization, Other)
  Sender: FDA-Public Use
  Company Number: PHHY2019DE207821

PATIENT
  Age: 38 Year
  Sex: Female

DRUGS (5)
  1. COSENTYX [Suspect]
     Active Substance: SECUKINUMAB
     Indication: Psoriasis
     Dosage: 300 MG, OT
     Route: 065
     Dates: start: 20170629
  2. COSENTYX [Suspect]
     Active Substance: SECUKINUMAB
     Indication: Psoriatic arthropathy
     Dosage: 300 MG
     Route: 065
     Dates: start: 20170727
  3. COSENTYX [Suspect]
     Active Substance: SECUKINUMAB
     Indication: Ankylosing spondylitis
     Dosage: 300 MG
     Route: 065
     Dates: start: 20180416, end: 20190408
  4. IBUPROFEN [Concomitant]
     Active Substance: IBUPROFEN
     Indication: Product used for unknown indication
     Dosage: 600 MG (FOR 1 WEEK)
     Route: 065
  5. PREDNISOLONE [Concomitant]
     Active Substance: PREDNISOLONE
     Indication: Product used for unknown indication
     Dosage: 8 MG, QD
     Route: 065

REACTIONS (5)
  - Foetal death [Unknown]
  - Stress [Unknown]
  - Road traffic accident [Unknown]
  - Maternal exposure during pregnancy [Not Recovered/Not Resolved]
  - Back injury [Recovered/Resolved]

NARRATIVE: CASE EVENT DATE: 20190408
